FAERS Safety Report 7803744-4 (Version None)
Quarter: 2011Q4

REPORT INFORMATION
  Report Type: 
  Country: None (occurrence: None)
  Receive Date: 20111010
  Receipt Date: 20111004
  Transmission Date: 20120403
  Serious: No
  Sender: FDA-Public Use
  Company Number: US-PFIZER INC-2011238615

PATIENT
  Sex: Male
  Weight: 73.5 kg

DRUGS (2)
  1. LIPITOR [Suspect]
     Dosage: UNK
  2. NIFEDIPINE [Suspect]
     Indication: HYPERTENSION
     Dosage: 20 MG, 1X/DAY
     Route: 048
     Dates: start: 20110901

REACTIONS (2)
  - GINGIVAL SWELLING [None]
  - GINGIVAL PAIN [None]
